FAERS Safety Report 9159352 (Version 2)
Quarter: 2013Q2

REPORT INFORMATION
  Report Type: Spontaneous
  Country: JP (occurrence: JP)
  Receive Date: 20130313
  Receipt Date: 20130403
  Transmission Date: 20140414
  Serious: Yes (Other)
  Sender: FDA-Public Use
  Company Number: JP-JNJFOC-20130304549

PATIENT
  Sex: 0

DRUGS (1)
  1. TRAMCET [Suspect]
     Indication: PRODUCT USED FOR UNKNOWN INDICATION
     Dosage: FOR ABOUT HALF A YEAR
     Route: 048

REACTIONS (2)
  - Renal impairment [Unknown]
  - Nausea [Unknown]
